FAERS Safety Report 18683517 (Version 1)
Quarter: 2020Q4

REPORT INFORMATION
  Report Type: Spontaneous
  Country: FR (occurrence: FR)
  Receive Date: 20201230
  Receipt Date: 20201230
  Transmission Date: 20210114
  Serious: Yes (Hospitalization)
  Sender: FDA-Public Use
  Company Number: NVSC2020FR342211

PATIENT
  Age: 16 Year
  Sex: Female
  Weight: 54 kg

DRUGS (3)
  1. FLUOXETINE HYDROCHLORIDE. [Suspect]
     Active Substance: FLUOXETINE HYDROCHLORIDE
     Indication: SUICIDAL BEHAVIOUR
     Dosage: 420 MG, TOTAL
     Route: 048
     Dates: start: 20200426, end: 20200426
  2. LARGACTIL [Suspect]
     Active Substance: CHLORPROMAZINE
     Indication: SUICIDAL BEHAVIOUR
     Dosage: 375 MG, TOTAL
     Route: 048
     Dates: start: 20200426, end: 20200426
  3. MOGADON [Suspect]
     Active Substance: NITRAZEPAM
     Indication: SUICIDAL BEHAVIOUR
     Dosage: 50 MG, TOTAL
     Route: 048
     Dates: start: 20200426, end: 20200426

REACTIONS (2)
  - Miosis [Not Recovered/Not Resolved]
  - Coma [Not Recovered/Not Resolved]

NARRATIVE: CASE EVENT DATE: 20200426
